FAERS Safety Report 10901450 (Version 3)
Quarter: 2016Q3

REPORT INFORMATION
  Report Type: Spontaneous
  Country: DK (occurrence: DK)
  Receive Date: 20150310
  Receipt Date: 20160809
  Transmission Date: 20161109
  Serious: Yes (Other)
  Sender: FDA-Public Use
  Company Number: DK-SA-2015SA027800

PATIENT
  Age: 35 Year
  Sex: Female

DRUGS (1)
  1. AUBAGIO [Suspect]
     Active Substance: TERIFLUNOMIDE
     Indication: MULTIPLE SCLEROSIS
     Dosage: STYRKE: 14 MG.
     Route: 048
     Dates: start: 20141215, end: 20150302

REACTIONS (4)
  - Uveitis [Recovering/Resolving]
  - Visual impairment [Unknown]
  - Cystoid macular oedema [Unknown]
  - Retinal degeneration [Unknown]

NARRATIVE: CASE EVENT DATE: 201501
